FAERS Safety Report 17065035 (Version 6)
Quarter: 2020Q3

REPORT INFORMATION
  Report Type: Spontaneous
  Country: US (occurrence: US)
  Receive Date: 20191122
  Receipt Date: 20200901
  Transmission Date: 20201102
  Serious: Yes (Hospitalization, Other)
  Sender: FDA-Public Use
  Company Number: US-SA-2019SA158858

PATIENT

DRUGS (4)
  1. LANTUS [Concomitant]
     Active Substance: INSULIN GLARGINE
     Dosage: 26 IU, QD
     Route: 065
  2. APIDRA [Suspect]
     Active Substance: INSULIN GLULISINE
     Dosage: 12 AM, 17 AFTERNOON AND 13 EVENING
     Route: 065
  3. APIDRA [Suspect]
     Active Substance: INSULIN GLULISINE
     Indication: TYPE 2 DIABETES MELLITUS
     Dosage: 40?41 UNITS, TID
     Route: 065
     Dates: start: 1999
  4. APIDRA [Suspect]
     Active Substance: INSULIN GLULISINE
     Dosage: 13 UNITS IN THE MORNING, 17 UNITS AT LUNCH, AND 12?13 AT NIGHT
     Route: 065

REACTIONS (3)
  - Expired product administered [Unknown]
  - Myocardial infarction [Unknown]
  - Blood glucose increased [Unknown]

NARRATIVE: CASE EVENT DATE: 2018
